FAERS Safety Report 18366552 (Version 1)
Quarter: 2020Q4

REPORT INFORMATION
  Report Type: Report from Study
  Country: CA (occurrence: CA)
  Receive Date: 20201009
  Receipt Date: 20201009
  Transmission Date: 20210114
  Serious: Yes (Hospitalization)
  Sender: FDA-Public Use
  Company Number: CA-PFIZER INC-2020383029

PATIENT
  Age: 65 Year
  Sex: Female
  Weight: 67 kg

DRUGS (9)
  1. DIPHENHYDRAMINE HCL [Concomitant]
     Active Substance: DIPHENHYDRAMINE HYDROCHLORIDE
     Indication: PREMEDICATION
     Dosage: 50 MG, EVERY 3 WEEKS
     Route: 048
  2. BEVACIZUMAB. [Suspect]
     Active Substance: BEVACIZUMAB
     Indication: BRAIN NEOPLASM MALIGNANT
  3. BEVACIZUMAB. [Suspect]
     Active Substance: BEVACIZUMAB
     Dosage: 400 MG,  EVERY 3 WEEKS
     Route: 042
  4. ACETAMINOPHEN. [Concomitant]
     Active Substance: ACETAMINOPHEN
     Indication: PREMEDICATION
     Dosage: 1000 MG, EVERY 3 WEEKS
     Route: 048
  5. BEVACIZUMAB. [Suspect]
     Active Substance: BEVACIZUMAB
     Indication: BRAIN NEOPLASM MALIGNANT
     Dosage: 500 MG, EVERY 3 WEEKS
     Route: 042
  6. BEVACIZUMAB. [Suspect]
     Active Substance: BEVACIZUMAB
     Indication: RADIATION NECROSIS
     Dosage: 540 MG, EVERY 3 WEEKS
     Route: 042
  7. BEVACIZUMAB. [Suspect]
     Active Substance: BEVACIZUMAB
     Indication: RADIATION NECROSIS
     Dosage: 500 MG
     Route: 042
  8. ACETAMINOPHEN. [Concomitant]
     Active Substance: ACETAMINOPHEN
     Dosage: 650 MG
     Route: 048
  9. METHYLPREDNISOLONE. [Concomitant]
     Active Substance: METHYLPREDNISOLONE
     Indication: PREMEDICATION
     Dosage: 100 MG, EVERY 3 WEEKS
     Route: 042

REACTIONS (16)
  - Haemoglobin decreased [Not Recovered/Not Resolved]
  - Blood creatinine increased [Not Recovered/Not Resolved]
  - Cystitis [Not Recovered/Not Resolved]
  - Headache [Not Recovered/Not Resolved]
  - Red cell distribution width increased [Not Recovered/Not Resolved]
  - Abdominal discomfort [Not Recovered/Not Resolved]
  - Blood pressure systolic increased [Not Recovered/Not Resolved]
  - Off label use [Not Recovered/Not Resolved]
  - Product use in unapproved indication [Not Recovered/Not Resolved]
  - Urinary tract infection [Not Recovered/Not Resolved]
  - Human epidermal growth factor receptor decreased [Not Recovered/Not Resolved]
  - Blood pressure diastolic abnormal [Not Recovered/Not Resolved]
  - Nausea [Not Recovered/Not Resolved]
  - Urine leukocyte esterase positive [Not Recovered/Not Resolved]
  - Walking aid user [Not Recovered/Not Resolved]
  - Weight decreased [Not Recovered/Not Resolved]
